FAERS Safety Report 5380282-2 (Version None)
Quarter: 2007Q3

REPORT INFORMATION
  Report Type: 
  Country: None (occurrence: None)
  Receive Date: 20070706
  Receipt Date: 20070628
  Transmission Date: 20080115
  Serious: Yes (Hospitalization, Other)
  Sender: FDA-Public Use
  Company Number: DE-AMGEN-UK227189

PATIENT
  Sex: Female

DRUGS (8)
  1. ARANESP [Suspect]
     Indication: RENAL FAILURE CHRONIC
     Route: 042
     Dates: start: 20040514, end: 20070601
  2. RENAGEL [Concomitant]
     Route: 048
  3. EMBOLEX [Concomitant]
     Route: 058
  4. ASPIRIN [Concomitant]
     Route: 048
  5. TEGRETOL [Concomitant]
     Route: 048
  6. KATADOLON [Concomitant]
     Route: 048
  7. CALCITRIOL [Concomitant]
     Route: 048
  8. OMEPRAZOLE [Concomitant]

REACTIONS (1)
  - ANAEMIA [None]
